FAERS Safety Report 25495632 (Version 1)
Quarter: 2025Q2

REPORT INFORMATION
  Report Type: Spontaneous
  Country: RU (occurrence: RU)
  Receive Date: 20250630
  Receipt Date: 20250630
  Transmission Date: 20250717
  Serious: Yes (Death, Other)
  Sender: PFIZER
  Company Number: RU-PFIZER INC-202500130624

PATIENT
  Sex: Male

DRUGS (1)
  1. SOMAVERT [Suspect]
     Active Substance: PEGVISOMANT
     Indication: Acromegaly

REACTIONS (2)
  - Cerebrovascular accident [Fatal]
  - Pneumonia [Fatal]

NARRATIVE: CASE EVENT DATE: 20250101
